FAERS Safety Report 7437751-0 (Version None)
Quarter: 2011Q2

REPORT INFORMATION
  Report Type: 
  Country: None (occurrence: None)
  Receive Date: 20110426
  Receipt Date: 20110419
  Transmission Date: 20111010
  Serious: Yes (Life-Threatening)
  Sender: FDA-Public Use
  Company Number: FR-PFIZER INC-2011084967

PATIENT
  Age: 52 Year
  Sex: Male

DRUGS (7)
  1. CORTANCYL [Interacting]
     Indication: PROPHYLAXIS AGAINST TRANSPLANT REJECTION
     Dosage: 10 MG PER DAY
     Route: 048
     Dates: start: 20100927
  2. EUPANTOL [Concomitant]
     Dosage: 40 MG PER DAY
  3. CELLCEPT [Interacting]
     Indication: PROPHYLAXIS AGAINST TRANSPLANT REJECTION
     Dosage: 250 MG PER DAY
     Route: 048
     Dates: start: 20100927
  4. VFEND [Suspect]
     Indication: INFECTION PROPHYLAXIS
     Dosage: 200 MG, 2X/DAY
     Route: 048
     Dates: start: 20100930, end: 20110107
  5. PENTACARINAT [Concomitant]
     Dosage: UNK
  6. TACROLIMUS [Interacting]
     Indication: PROPHYLAXIS AGAINST TRANSPLANT REJECTION
     Dosage: 2 MG PER DAY
     Route: 048
     Dates: start: 20100927
  7. ATENOLOL [Concomitant]
     Dosage: 100 MG PER DAY

REACTIONS (1)
  - TRANSPLANT REJECTION [None]
